FAERS Safety Report 10506786 (Version 1)
Quarter: 2014Q4

REPORT INFORMATION
  Report Type: Spontaneous
  Country: US (occurrence: None)
  Receive Date: 20141007
  Receipt Date: 20141007
  Transmission Date: 20150528
  Serious: Yes (Other)
  Sender: FDA-Public Use
  Company Number: VAL_03424_2014

PATIENT
  Sex: Male

DRUGS (10)
  1. PEPCID /00706001/ (UNKNOWN) [Concomitant]
  2. NUTROPIN AQ [Suspect]
     Active Substance: SOMATROPIN
     Indication: BODY HEIGHT BELOW NORMAL
     Dosage: 6X/WEEK
     Route: 058
  3. SODIUM BICARBONATE (UNKNOWN) [Concomitant]
  4. KLOR-CON (UNKNOWN) [Concomitant]
  5. ALBUTEROL /00139501/ (UNKNOWN) [Concomitant]
  6. LISINOPRIL (UNKNOWN) [Concomitant]
     Active Substance: LISINOPRIL
  7. IRON (UNKNOWN) [Concomitant]
  8. CALCITRIOL. [Suspect]
     Active Substance: CALCITRIOL
     Indication: PRODUCT USED FOR UNKNOWN INDICATION
     Dosage: (DF)
  9. NUTROPIN AQ [Suspect]
     Active Substance: SOMATROPIN
     Indication: CHRONIC KIDNEY DISEASE
     Dosage: 6X/WEEK
     Route: 058
  10. EPOGEN (UNKNOWN) [Concomitant]

REACTIONS (4)
  - Melanocytic naevus [None]
  - Blood creatinine increased [None]
  - Hypertension [None]
  - Initial insomnia [None]
